FAERS Safety Report 16432564 (Version 1)
Quarter: 2019Q2

REPORT INFORMATION
  Report Type: Spontaneous
  Country: IT (occurrence: IT)
  Receive Date: 20190614
  Receipt Date: 20190614
  Transmission Date: 20190711
  Serious: Yes (Other)
  Sender: FDA-Public Use
  Company Number: IT-TEVA-2019-IT-1062031

PATIENT
  Age: 61 Year
  Sex: Male

DRUGS (4)
  1. ASCRIPTIN [Concomitant]
     Active Substance: ASPIRIN
     Route: 065
  2. RAMIPRIL. [Suspect]
     Active Substance: RAMIPRIL
     Indication: HYPERTENSION
     Dosage: 1 DOSAGE FORMS DAILY;
     Route: 048
     Dates: start: 20190101, end: 20190426
  3. SOTALEX [Concomitant]
     Active Substance: SOTALOL
     Route: 065
  4. TORVAST [Concomitant]
     Active Substance: ATORVASTATIN
     Route: 065

REACTIONS (1)
  - Renal failure [Recovering/Resolving]

NARRATIVE: CASE EVENT DATE: 20190426
